FAERS Safety Report 20852711 (Version 14)
Quarter: 2023Q1

REPORT INFORMATION
  Report Type: Spontaneous
  Country: CA (occurrence: CA)
  Receive Date: 20220520
  Receipt Date: 20230306
  Transmission Date: 20230418
  Serious: Yes (Other)
  Sender: FDA-Public Use
  Company Number: CA-CELLTRION INC.-2022CA007086

PATIENT

DRUGS (12)
  1. INFLECTRA [Suspect]
     Active Substance: INFLIXIMAB-DYYB
     Indication: Crohn^s disease
     Dosage: 10 MG/KG, INDUCTION WEEK 0, 2, 6 THEN Q 8 WEEKS FOR 12 MONTHS FOLLOWED BY 5 MG/KG Q 8 WEEKS
     Route: 042
     Dates: start: 20220510
  2. INFLECTRA [Suspect]
     Active Substance: INFLIXIMAB-DYYB
     Dosage: 10 MG/KG, INDUCTION WEEK 0, 2, 6 THEN Q 8 WEEKS FOR 12 MONTHS FOLLOWED BY 5 MG/KG EVERY 8 WEEKS
     Route: 042
     Dates: start: 20220525
  3. INFLECTRA [Suspect]
     Active Substance: INFLIXIMAB-DYYB
     Dosage: 10MG/KG(700MG),INDUCTION WEEK 0,2,6 THEN Q 8WEEKS FOR 12 MONTHS FOLLOWED BY 5 MG/KG Q 8WEEKS
     Route: 042
     Dates: start: 20220620
  4. INFLECTRA [Suspect]
     Active Substance: INFLIXIMAB-DYYB
     Dosage: 10MG/KG(700MG), INDUCTION WEEK 0,2,6 THEN Q 8WEEKS FOR 12 MONTHS FOLLOWED BY 5 MG/KG Q 8WEEKS
     Route: 042
     Dates: start: 20220620
  5. INFLECTRA [Suspect]
     Active Substance: INFLIXIMAB-DYYB
     Dosage: 5 MG/KG, EVERY 8 WEEKS
     Route: 042
     Dates: start: 20220816
  6. INFLECTRA [Suspect]
     Active Substance: INFLIXIMAB-DYYB
     Dosage: 5 MG/KG, EVERY 8 WEEKS
     Route: 042
     Dates: start: 20221012
  7. INFLECTRA [Suspect]
     Active Substance: INFLIXIMAB-DYYB
     Dosage: 5 MG/KG, EVERY 8 WEEKS
     Route: 042
     Dates: start: 20221222
  8. INFLECTRA [Suspect]
     Active Substance: INFLIXIMAB-DYYB
     Dosage: 660MG (10MG/KG), Q4 WEEKS
     Route: 042
     Dates: start: 20230207
  9. INFLECTRA [Suspect]
     Active Substance: INFLIXIMAB-DYYB
     Dosage: 660MG (10MG/KG), Q4 WEEKS
     Route: 042
     Dates: start: 20230207
  10. INFLECTRA [Suspect]
     Active Substance: INFLIXIMAB-DYYB
     Dosage: 660MG (10MG/KG), Q4 WEEKS
     Route: 042
     Dates: start: 20230207
  11. INFLECTRA [Suspect]
     Active Substance: INFLIXIMAB-DYYB
     Dosage: 660MG (10MG/KG), Q4 WEEKS
     Route: 042
     Dates: start: 20230207
  12. INFLECTRA [Suspect]
     Active Substance: INFLIXIMAB-DYYB
     Dosage: 680MG (10MG/KG), W2 (REINDUCTION W0, W2, W6 THEN Q4W)
     Route: 042
     Dates: start: 20230220

REACTIONS (17)
  - Iron deficiency [Unknown]
  - Cellulitis [Recovered/Resolved]
  - Hypotension [Unknown]
  - Dizziness [Unknown]
  - Nausea [Not Recovered/Not Resolved]
  - Pallor [Unknown]
  - Asthenia [Not Recovered/Not Resolved]
  - Condition aggravated [Recovered/Resolved]
  - Anal fissure [Not Recovered/Not Resolved]
  - Poor venous access [Unknown]
  - Nasopharyngitis [Not Recovered/Not Resolved]
  - Cough [Not Recovered/Not Resolved]
  - Retching [Not Recovered/Not Resolved]
  - Headache [Unknown]
  - Off label use [Unknown]
  - Off label use [Unknown]
  - Intentional product use issue [Unknown]

NARRATIVE: CASE EVENT DATE: 20220101
